FAERS Safety Report 8392911-X (Version None)
Quarter: 2012Q1

REPORT INFORMATION
  Report Type: 
  Country: None (occurrence: None)
  Receive Date: 20120323
  Receipt Date: 20110301
  Transmission Date: 20120608
  Serious: Yes (Other)
  Sender: FDA-Public Use
  Company Number: 163-21880-11030316

PATIENT
  Age: 77 Year
  Sex: Male
  Weight: 74.8435 kg

DRUGS (9)
  1. LEVAQUIN [Concomitant]
  2. ASPIRIN [Concomitant]
  3. FENTANYL [Concomitant]
  4. REVLIMID [Suspect]
     Indication: NON-HODGKIN'S LYMPHOMA
     Dosage: 15 MG, DAILY X 14 DAYS, PO
     Route: 048
     Dates: start: 20101216, end: 20101231
  5. ACYCLOVIR [Concomitant]
  6. ATENOLOL [Concomitant]
  7. METOPROLOL TARTRATE [Concomitant]
  8. LIPITOR [Concomitant]
  9. LYRICA [Concomitant]

REACTIONS (2)
  - WHITE BLOOD CELL COUNT DECREASED [None]
  - BLOOD COUNT ABNORMAL [None]
